FAERS Safety Report 10023673 (Version 1)
Quarter: 2014Q1

REPORT INFORMATION
  Report Type: Spontaneous
  Country: US (occurrence: None)
  Receive Date: 20140304
  Receipt Date: 20140304
  Transmission Date: 20141002
  Serious: Yes (Hospitalization, Other)
  Sender: FDA-Public Use
  Company Number: RB-59436-2013

PATIENT
  Age: 60 Year
  Sex: Male

DRUGS (1)
  1. SUBOXONE [Suspect]
     Indication: PAIN
     Route: 060
     Dates: start: 2009, end: 2009

REACTIONS (3)
  - Off label use [None]
  - Weight decreased [None]
  - Asthenia [None]
